FAERS Safety Report 8239345-6 (Version None)
Quarter: 2012Q1

REPORT INFORMATION
  Report Type: 
  Country: None (occurrence: None)
  Receive Date: 20120326
  Receipt Date: 20120313
  Transmission Date: 20120608
  Serious: Yes (Hospitalization)
  Sender: FDA-Public Use
  Company Number: 024007

PATIENT
  Age: 60 Year
  Sex: Female
  Weight: 73.5 kg

DRUGS (11)
  1. SODIUM POLYSTYRENE SULFONATE [Concomitant]
  2. CONIEL (BENIDIPINE HYDROCHLORIDE) [Concomitant]
  3. NOVOLOG [Concomitant]
  4. XALACOM (LATANOPROST, TIMOLOL MALEATE) [Concomitant]
  5. MACUGEN [Suspect]
     Indication: DIABETIC RETINAL OEDEMA
     Dosage: 0.3 MG, INTRAOCULAR
     Route: 031
     Dates: start: 20110425, end: 20111005
  6. HIRUDOID (HEPARINOID) [Concomitant]
  7. MICARDIS [Concomitant]
  8. CRESTOR [Concomitant]
  9. AZOPT [Concomitant]
  10. NERISONE [Concomitant]
  11. FAMOTIDINE [Concomitant]

REACTIONS (2)
  - GLAUCOMA [None]
  - DYSLIPIDAEMIA [None]
